FAERS Safety Report 9952250 (Version 1)
Quarter: 2014Q1

REPORT INFORMATION
  Report Type: Report from Study
  Country: US (occurrence: US)
  Receive Date: 20140304
  Receipt Date: 20140304
  Transmission Date: 20141002
  Serious: No
  Sender: FDA-Public Use
  Company Number: US-ABBVIE-13P-163-1070944-00

PATIENT
  Age: 24 Year
  Sex: Female

DRUGS (4)
  1. HUMIRA [Suspect]
     Indication: CROHN^S DISEASE
     Route: 058
     Dates: start: 20121102
  2. 6-MP [Concomitant]
     Indication: CROHN^S DISEASE
     Dosage: 50 MG 1.5 TABS
  3. ASACOL [Concomitant]
     Indication: CROHN^S DISEASE
  4. JUNEL [Concomitant]
     Indication: CONTRACEPTION
     Dosage: 1MG/20MCG

REACTIONS (5)
  - Papule [Not Recovered/Not Resolved]
  - Urticaria [Recovering/Resolving]
  - Ear pain [Recovered/Resolved]
  - Pharyngeal oedema [Not Recovered/Not Resolved]
  - Oropharyngeal pain [Not Recovered/Not Resolved]
